FAERS Safety Report 7773494-1 (Version None)
Quarter: 2011Q3

REPORT INFORMATION
  Report Type: 
  Country: None (occurrence: None)
  Receive Date: 20110922
  Receipt Date: 20110913
  Transmission Date: 20111222
  Serious: No
  Sender: FDA-Public Use
  Company Number: US-B.I. PHARMACEUTICALS,INC./RIDGEFIELD-2011-BP-22165BP

PATIENT
  Sex: Male

DRUGS (6)
  1. SPIRIVA [Suspect]
     Indication: CHRONIC OBSTRUCTIVE PULMONARY DISEASE
     Dosage: 18 MCG
     Route: 055
     Dates: start: 20110601
  2. PREDNISONE [Concomitant]
     Dosage: 20 MG
     Route: 048
  3. FLOMAX [Concomitant]
     Dosage: 0.8 MG
     Route: 048
  4. FOLIC ACID [Concomitant]
     Dosage: 1 MG
     Route: 048
  5. ATENOLOL [Concomitant]
     Dosage: 50 MG
     Route: 048
  6. FAMOTIDINE [Concomitant]
     Dosage: 80 MG
     Route: 048

REACTIONS (1)
  - VISUAL IMPAIRMENT [None]
